FAERS Safety Report 21874098 (Version 1)
Quarter: 2023Q1

REPORT INFORMATION
  Report Type: Spontaneous
  Country: US (occurrence: US)
  Receive Date: 20230117
  Receipt Date: 20230117
  Transmission Date: 20230417
  Serious: No
  Sender: FDA-Public Use
  Company Number: US-Calliditas-2022CAL00647

PATIENT
  Age: 62 Year
  Sex: Female

DRUGS (1)
  1. TARPEYO [Suspect]
     Active Substance: BUDESONIDE
     Indication: IgA nephropathy
     Dosage: 16 MG (4MG CAPSULES) DAILY
     Route: 048
     Dates: start: 20220325

REACTIONS (2)
  - Drug ineffective [Unknown]
  - Prescribed underdose [Unknown]
